FAERS Safety Report 19517957 (Version 1)
Quarter: 2021Q3

REPORT INFORMATION
  Report Type: Spontaneous
  Country: US (occurrence: US)
  Receive Date: 20210712
  Receipt Date: 20210712
  Transmission Date: 20211014
  Serious: No
  Sender: FDA-Public Use
  Company Number: US-GLAXOSMITHKLINE-USCH2021044402

PATIENT
  Age: 2 Year
  Sex: Female

DRUGS (1)
  1. ADVIL [Suspect]
     Active Substance: IBUPROFEN
     Indication: PRODUCT USED FOR UNKNOWN INDICATION
     Dosage: 2 DF (2 PILLS)
     Dates: start: 20210708, end: 20210708

REACTIONS (1)
  - Accidental exposure to product by child [Recovering/Resolving]

NARRATIVE: CASE EVENT DATE: 20210708
